FAERS Safety Report 5473882-2 (Version None)
Quarter: 2007Q3

REPORT INFORMATION
  Report Type: 
  Country: None (occurrence: None)
  Receive Date: 20070831
  Receipt Date: 20070626
  Transmission Date: 20080115
  Serious: No
  Sender: FDA-Public Use
  Company Number: 243621

PATIENT
  Age: 62 Year
  Sex: Female

DRUGS (4)
  1. LUCENTIS [Suspect]
     Indication: DRUG USE FOR UNKNOWN INDICATION
     Dates: start: 20070613
  2. LEVOTHYROXIN (LEVOTHYROXINE SODIUM) [Concomitant]
  3. VALSARTAN [Concomitant]
  4. SIMVASTATIN [Concomitant]

REACTIONS (1)
  - VISUAL DISTURBANCE [None]
